FAERS Safety Report 16199404 (Version 1)
Quarter: 2019Q2

REPORT INFORMATION
  Report Type: Spontaneous
  Country: US (occurrence: US)
  Receive Date: 20190415
  Receipt Date: 20190415
  Transmission Date: 20190711
  Serious: Yes (Hospitalization)
  Sender: FDA-Public Use
  Company Number: US-ACTELION-A-NJ2019-188917

PATIENT
  Sex: Male

DRUGS (4)
  1. ZAVESCA [Suspect]
     Active Substance: MIGLUSTAT
     Indication: FABRY^S DISEASE
     Dosage: 200 MG, TID
     Route: 048
     Dates: start: 20130122
  2. PROVIGIL [Concomitant]
     Active Substance: MODAFINIL
     Dosage: 1 DF, PRN
     Route: 048
  3. TYLENOL [Concomitant]
     Active Substance: ACETAMINOPHEN
     Dosage: 1 DF, PRN
     Dates: start: 20130121
  4. 2-HYDROXYPROPYL-BETA-CYCLODEXTRIN [Concomitant]
     Dosage: 1 DOSE IV AS DIRECTED
     Route: 042
     Dates: start: 20160203

REACTIONS (1)
  - Gastrostomy [Unknown]
